FAERS Safety Report 21195407 (Version 2)
Quarter: 2022Q3

REPORT INFORMATION
  Report Type: Report from Study
  Country: US (occurrence: US)
  Receive Date: 20220810
  Receipt Date: 20220816
  Transmission Date: 20221027
  Serious: Yes (Death, Hospitalization, Other)
  Sender: FDA-Public Use
  Company Number: US-009507513-2208USA002567

PATIENT
  Age: 71 Year
  Sex: Male

DRUGS (1)
  1. KEYTRUDA [Suspect]
     Active Substance: PEMBROLIZUMAB
     Indication: Lung neoplasm malignant
     Dosage: 200 MILLIGRAM, Q3W
     Route: 042
     Dates: end: 2022

REACTIONS (3)
  - Malignant neoplasm progression [Fatal]
  - General physical health deterioration [Not Recovered/Not Resolved]
  - Medical procedure [Recovering/Resolving]

NARRATIVE: CASE EVENT DATE: 20220630
